FAERS Safety Report 9410516 (Version 1)
Quarter: 2013Q3

REPORT INFORMATION
  Report Type: Spontaneous
  Country: US (occurrence: None)
  Receive Date: 20130718
  Receipt Date: 20130718
  Transmission Date: 20140515
  Serious: No
  Sender: FDA-Public Use
  Company Number: None

PATIENT
  Age: 55 Year
  Sex: Male

DRUGS (1)
  1. EGRIFTA [Suspect]
     Dosage: INJECT 2 MG UNDER THE SKIN DAILY
     Dates: start: 20130501

REACTIONS (2)
  - Fluid retention [None]
  - Weight increased [None]
